FAERS Safety Report 5034907-1 (Version None)
Quarter: 2006Q2

REPORT INFORMATION
  Report Type: 
  Country: None (occurrence: None)
  Receive Date: 20060627
  Receipt Date: 20060616
  Transmission Date: 20061013
  Serious: Yes (Hospitalization)
  Sender: FDA-Public Use
  Company Number: FR-ABBOTT-06P-056-0336384-00

PATIENT
  Sex: Female

DRUGS (4)
  1. KALETRA [Suspect]
     Indication: HIV INFECTION
     Route: 048
     Dates: start: 20060310, end: 20060616
  2. HEPTAMINOL [Concomitant]
     Indication: HYPERTENSION
     Route: 048
  3. DESLORATADINE [Concomitant]
     Indication: PRURITUS
     Route: 048
  4. EUPHYTOSE [Concomitant]
     Indication: INSOMNIA
     Route: 048

REACTIONS (1)
  - CHORIOMENINGITIS LYMPHOCYTIC [None]
